FAERS Safety Report 26109248 (Version 1)
Quarter: 2025Q4

REPORT INFORMATION
  Report Type: Spontaneous
  Country: RU (occurrence: RU)
  Receive Date: 20251201
  Receipt Date: 20251201
  Transmission Date: 20260118
  Serious: Yes (Other)
  Sender: BRISTOL-MYERS SQUIBB COMPANY
  Company Number: RU-BRISTOL-MYERS SQUIBB COMPANY-2025-160665

PATIENT
  Age: 58 Year
  Sex: Male

DRUGS (44)
  1. NIVOLUMAB [Suspect]
     Active Substance: NIVOLUMAB
     Indication: Gastric cancer
     Dosage: 5 CYCLES OF CHEMOIMMUNOTHERAPY NIVOLUMAB + FOLFOX
     Dates: start: 20221229, end: 20230302
  2. NIVOLUMAB [Suspect]
     Active Substance: NIVOLUMAB
     Dosage: 7 AND 9 CYCLES OF CHEMOIMMUNOTHERAPY NIVOLUMAB + FOLFOX
     Dates: start: 20230406, end: 20230504
  3. NIVOLUMAB [Suspect]
     Active Substance: NIVOLUMAB
     Dosage: 10TH CYCLE OF CHEMOTHERAPY NIVOLUMAB + FOLFOX
  4. NIVOLUMAB [Suspect]
     Active Substance: NIVOLUMAB
     Dosage: 11TH CYCLE OF CHEMOTHERAPY NIVOLUMAB + FOLFOX
  5. NIVOLUMAB [Suspect]
     Active Substance: NIVOLUMAB
     Dosage: 12TH CYCLE OF CHEMOTHERAPY NIVOLUMAB + FOLFOX
  6. NIVOLUMAB [Suspect]
     Active Substance: NIVOLUMAB
     Dosage: 13TH CYCLE OF CHEMOTHERAPY NIVOLUMAB + FOLFOX REGIMEN
  7. NIVOLUMAB [Suspect]
     Active Substance: NIVOLUMAB
     Dosage: 14TH CYCLE OF CHEMOTHERAPY NIVOLUMAB + FOLFOX
  8. NIVOLUMAB [Suspect]
     Active Substance: NIVOLUMAB
     Dosage: THE 15TH (1ST) CYCLE OF CHEMOTHERAPY WITH N + DE GRAMONT REGIMEN
  9. NIVOLUMAB [Suspect]
     Active Substance: NIVOLUMAB
     Dosage: 16TH (2ND) CYCLE OF CHEMOTHERAPY WITH N + DE GRAMONT REGIMEN
  10. NIVOLUMAB [Suspect]
     Active Substance: NIVOLUMAB
     Dosage: 17TH (3RD) CYCLE OF CHEMOTHERAPY WITH N + DE GRAMONT REGIMEN
  11. NIVOLUMAB [Suspect]
     Active Substance: NIVOLUMAB
     Dosage: 17TH (3RD) CYCLE OF CHEMOTHERAPY WITH N + DE GRAMONT REGIMEN
  12. NIVOLUMAB [Suspect]
     Active Substance: NIVOLUMAB
     Dosage: 19TH (5TH) CYCLE OF CHEMOTHERAPY WITH N + DE GRAMONT REGIMEN
  13. NIVOLUMAB [Suspect]
     Active Substance: NIVOLUMAB
     Dosage: 20TH (6TH) CYCLE OF CHEMOTHERAPY WITH N + DE GRAMONT REGIMEN
  14. NIVOLUMAB [Suspect]
     Active Substance: NIVOLUMAB
     Dosage: 21ST (7TH) CYCLE OF CHEMOTHERAPY WITH N + DE GRAMONT REGIMEN
  15. NIVOLUMAB [Suspect]
     Active Substance: NIVOLUMAB
     Dosage: 22ND (8TH) CYCLE OF CHEMOTHERAPY WITH N + DE GRAMONT REGIMEN
  16. NIVOLUMAB [Suspect]
     Active Substance: NIVOLUMAB
     Dosage: 23RD (9TH) CYCLE OF CHEMOTHERAPY WITH N + DE GRAMONT REGIMEN
  17. NIVOLUMAB [Suspect]
     Active Substance: NIVOLUMAB
     Dosage: 25TH (11TH) CYCLE OF CHEMOTHERAPY WITH N + DE GRAMONT REGIMEN
  18. NIVOLUMAB [Suspect]
     Active Substance: NIVOLUMAB
     Dosage: 26TH (12TH) CYCLE OF CHEMOTHERAPY WITH N + DE GRAMONT REGIMEN
  19. NIVOLUMAB [Suspect]
     Active Substance: NIVOLUMAB
     Dosage: 27TH (13TH) CYCLE OF CHEMOTHERAPY WITH N + DE GRAMONT REGIMEN
  20. NIVOLUMAB [Suspect]
     Active Substance: NIVOLUMAB
     Dosage: 28TH (14TH) CYCLE OF CHEMOTHERAPY WITH N + DE GRAMONT REGIMEN
  21. NIVOLUMAB [Suspect]
     Active Substance: NIVOLUMAB
     Dosage: 29TH (15TH) CYCLE OF CHEMOTHERAPY WITH N + DE GRAMONT REGIMEN
  22. NIVOLUMAB [Suspect]
     Active Substance: NIVOLUMAB
     Dosage: 30TH (16TH) CYCLE OF CHEMOTHERAPY WITH N + DE GRAMONT REGIMEN
  23. FLUOROURACIL\LEUCOVORIN CALCIUM\OXALIPLATIN [Suspect]
     Active Substance: FLUOROURACIL\LEUCOVORIN CALCIUM\OXALIPLATIN
     Indication: Gastric cancer
     Dosage: 5 CYCLES OF CHEMOIMMUNOTHERAPY NIVOLUMAB + FOLFOX
     Dates: start: 20221229, end: 20230302
  24. FLUOROURACIL\LEUCOVORIN CALCIUM\OXALIPLATIN [Suspect]
     Active Substance: FLUOROURACIL\LEUCOVORIN CALCIUM\OXALIPLATIN
     Dosage: 7 AND 9 CYCLES OF CHEMOIMMUNOTHERAPY NIVOLUMAB + FOLFOX
     Dates: start: 20230406, end: 20230504
  25. FLUOROURACIL\LEUCOVORIN CALCIUM\OXALIPLATIN [Suspect]
     Active Substance: FLUOROURACIL\LEUCOVORIN CALCIUM\OXALIPLATIN
     Dosage: 10TH CYCLE OF CHEMOTHERAPY NIVOLUMAB + FOLFOX
  26. FLUOROURACIL\LEUCOVORIN CALCIUM\OXALIPLATIN [Suspect]
     Active Substance: FLUOROURACIL\LEUCOVORIN CALCIUM\OXALIPLATIN
     Dosage: 11TH CYCLE OF CHEMOTHERAPY NIVOLUMAB + FOLFOX
  27. FLUOROURACIL\LEUCOVORIN CALCIUM\OXALIPLATIN [Suspect]
     Active Substance: FLUOROURACIL\LEUCOVORIN CALCIUM\OXALIPLATIN
     Dosage: 12TH CYCLE OF CHEMOTHERAPY NIVOLUMAB + FOLFOX
  28. FLUOROURACIL\LEUCOVORIN CALCIUM\OXALIPLATIN [Suspect]
     Active Substance: FLUOROURACIL\LEUCOVORIN CALCIUM\OXALIPLATIN
     Dosage: 13TH CYCLE OF CHEMOTHERAPY NIVOLUMAB + FOLFOX REGIMEN
  29. FLUOROURACIL\LEUCOVORIN CALCIUM\OXALIPLATIN [Suspect]
     Active Substance: FLUOROURACIL\LEUCOVORIN CALCIUM\OXALIPLATIN
     Dosage: 14TH CYCLE OF CHEMOTHERAPY NIVOLUMAB + FOLFOX
  30. FLUOROURACIL\LEUCOVORIN CALCIUM\OXALIPLATIN [Suspect]
     Active Substance: FLUOROURACIL\LEUCOVORIN CALCIUM\OXALIPLATIN
     Dosage: THE 15TH (1ST) CYCLE OF CHEMOTHERAPY WITH N + DE GRAMONT REGIMEN
  31. FLUOROURACIL\LEUCOVORIN CALCIUM\OXALIPLATIN [Suspect]
     Active Substance: FLUOROURACIL\LEUCOVORIN CALCIUM\OXALIPLATIN
     Dosage: 16TH (2ND) CYCLE OF CHEMOTHERAPY WITH N + DE GRAMONT REGIMEN
  32. FLUOROURACIL\LEUCOVORIN CALCIUM\OXALIPLATIN [Suspect]
     Active Substance: FLUOROURACIL\LEUCOVORIN CALCIUM\OXALIPLATIN
     Dosage: 17TH (3RD) CYCLE OF CHEMOTHERAPY WITH N + DE GRAMONT REGIMEN
  33. FLUOROURACIL\LEUCOVORIN CALCIUM\OXALIPLATIN [Suspect]
     Active Substance: FLUOROURACIL\LEUCOVORIN CALCIUM\OXALIPLATIN
     Dosage: 17TH (3RD) CYCLE OF CHEMOTHERAPY WITH N + DE GRAMONT REGIMEN
  34. FLUOROURACIL\LEUCOVORIN CALCIUM\OXALIPLATIN [Suspect]
     Active Substance: FLUOROURACIL\LEUCOVORIN CALCIUM\OXALIPLATIN
     Dosage: 19TH (5TH) CYCLE OF CHEMOTHERAPY WITH N + DE GRAMONT REGIMEN
  35. FLUOROURACIL\LEUCOVORIN CALCIUM\OXALIPLATIN [Suspect]
     Active Substance: FLUOROURACIL\LEUCOVORIN CALCIUM\OXALIPLATIN
     Dosage: 20TH (6TH) CYCLE OF CHEMOTHERAPY WITH N + DE GRAMONT REGIMEN
  36. FLUOROURACIL\LEUCOVORIN CALCIUM\OXALIPLATIN [Suspect]
     Active Substance: FLUOROURACIL\LEUCOVORIN CALCIUM\OXALIPLATIN
     Dosage: 21ST (7TH) CYCLE OF CHEMOTHERAPY WITH N + DE GRAMONT REGIMEN
  37. FLUOROURACIL\LEUCOVORIN CALCIUM\OXALIPLATIN [Suspect]
     Active Substance: FLUOROURACIL\LEUCOVORIN CALCIUM\OXALIPLATIN
     Dosage: 22ND (8TH) CYCLE OF CHEMOTHERAPY WITH N + DE GRAMONT REGIMEN
  38. FLUOROURACIL\LEUCOVORIN CALCIUM\OXALIPLATIN [Suspect]
     Active Substance: FLUOROURACIL\LEUCOVORIN CALCIUM\OXALIPLATIN
     Dosage: 23RD (9TH) CYCLE OF CHEMOTHERAPY WITH N + DE GRAMONT REGIMEN
  39. FLUOROURACIL\LEUCOVORIN CALCIUM\OXALIPLATIN [Suspect]
     Active Substance: FLUOROURACIL\LEUCOVORIN CALCIUM\OXALIPLATIN
     Dosage: 25TH (11TH) CYCLE OF CHEMOTHERAPY WITH N + DE GRAMONT REGIMEN
  40. FLUOROURACIL\LEUCOVORIN CALCIUM\OXALIPLATIN [Suspect]
     Active Substance: FLUOROURACIL\LEUCOVORIN CALCIUM\OXALIPLATIN
     Dosage: 26TH (12TH) CYCLE OF CHEMOTHERAPY WITH N + DE GRAMONT REGIMEN
  41. FLUOROURACIL\LEUCOVORIN CALCIUM\OXALIPLATIN [Suspect]
     Active Substance: FLUOROURACIL\LEUCOVORIN CALCIUM\OXALIPLATIN
     Dosage: 27TH (13TH) CYCLE OF CHEMOTHERAPY WITH N + DE GRAMONT REGIMEN
  42. FLUOROURACIL\LEUCOVORIN CALCIUM\OXALIPLATIN [Suspect]
     Active Substance: FLUOROURACIL\LEUCOVORIN CALCIUM\OXALIPLATIN
     Dosage: 28TH (14TH) CYCLE OF CHEMOTHERAPY WITH N + DE GRAMONT REGIMEN
  43. FLUOROURACIL\LEUCOVORIN CALCIUM\OXALIPLATIN [Suspect]
     Active Substance: FLUOROURACIL\LEUCOVORIN CALCIUM\OXALIPLATIN
     Dosage: 29TH (15TH) CYCLE OF CHEMOTHERAPY WITH N + DE GRAMONT REGIMEN
  44. FLUOROURACIL\LEUCOVORIN CALCIUM\OXALIPLATIN [Suspect]
     Active Substance: FLUOROURACIL\LEUCOVORIN CALCIUM\OXALIPLATIN
     Dosage: 30TH (16TH) CYCLE OF CHEMOTHERAPY WITH N + DE GRAMONT REGIMEN

REACTIONS (7)
  - Biliary dilatation [Unknown]
  - Malignant neoplasm progression [Unknown]
  - Gallbladder disorder [Unknown]
  - Pruritus [Recovered/Resolved]
  - Eye pruritus [Recovered/Resolved]
  - Erythema [Recovered/Resolved]
  - Ocular hyperaemia [Recovered/Resolved]

NARRATIVE: CASE EVENT DATE: 20230518
